FAERS Safety Report 25515487 (Version 3)
Quarter: 2025Q3

REPORT INFORMATION
  Report Type: Report from Study
  Country: KR (occurrence: KR)
  Receive Date: 20250704
  Receipt Date: 20250918
  Transmission Date: 20251021
  Serious: Yes (Hospitalization)
  Sender: CELLTRION
  Company Number: KR-CELLTRION INC.-2025KR021375

PATIENT

DRUGS (24)
  1. BEVACIZUMAB-ADCD [Suspect]
     Active Substance: BEVACIZUMAB-ADCD
     Indication: Colorectal cancer metastatic
     Dosage: 200 MG, Q2W (WEIGHT: 41.7 KGS)
     Route: 042
     Dates: start: 20250120
  2. BEVACIZUMAB-ADCD [Suspect]
     Active Substance: BEVACIZUMAB-ADCD
     Dosage: 200 MG, Q2W (WEIGHT: 41.7KGS)
     Route: 042
     Dates: start: 20250211
  3. BEVACIZUMAB-ADCD [Suspect]
     Active Substance: BEVACIZUMAB-ADCD
     Dosage: 200 MG, Q2W (WEIGHT: 41.7 KGS)
     Route: 042
     Dates: start: 20250304
  4. BEVACIZUMAB-ADCD [Suspect]
     Active Substance: BEVACIZUMAB-ADCD
     Dosage: 200 MG, Q2W (WEIGHT: 41.7KGS)
     Route: 042
     Dates: start: 20250319
  5. BEVACIZUMAB-ADCD [Suspect]
     Active Substance: BEVACIZUMAB-ADCD
     Dosage: 200 MG, Q2W (WEIGHT: 41.7KGS)
     Route: 042
     Dates: start: 20250408
  6. BEVACIZUMAB-ADCD [Suspect]
     Active Substance: BEVACIZUMAB-ADCD
     Dosage: 200 MG, Q2W (WEIGHT: 41.7KGS)
     Route: 042
     Dates: start: 20250430
  7. BEVACIZUMAB-ADCD [Suspect]
     Active Substance: BEVACIZUMAB-ADCD
     Dosage: 223 MG, Q2W (WEIGHT: 44.7KGS)
     Route: 042
     Dates: start: 20250529
  8. BEVACIZUMAB-ADCD [Suspect]
     Active Substance: BEVACIZUMAB-ADCD
     Dosage: 223 MG, Q2W (WEIGHT: 44.7 KGS)
     Route: 042
     Dates: start: 20250612
  9. BEVACIZUMAB-ADCD [Suspect]
     Active Substance: BEVACIZUMAB-ADCD
     Dosage: 223 MG, Q2W (WEIGHT: 44.7KGS)
     Route: 042
     Dates: start: 20250628
  10. FLUOROURACIL [Suspect]
     Active Substance: FLUOROURACIL
     Indication: Chemotherapy
     Dates: start: 20250120
  11. IRINOTECAN HYDROCHLORIDE [Suspect]
     Active Substance: IRINOTECAN HYDROCHLORIDE
     Indication: Chemotherapy
     Dates: start: 20250120
  12. EZEFENO [Concomitant]
     Indication: Hyperlipidaemia
     Route: 048
     Dates: start: 20240911
  13. CRESTOR [Concomitant]
     Active Substance: ROSUVASTATIN CALCIUM
     Indication: Hyperlipidaemia
     Route: 048
     Dates: start: 20240911
  14. TEGOPRAZAN [Concomitant]
     Active Substance: TEGOPRAZAN
     Indication: Prophylaxis
     Route: 048
     Dates: start: 20221125
  15. FEROBA YOU SR [Concomitant]
     Indication: Prophylaxis
     Route: 048
     Dates: start: 20221123
  16. CALCITRIOL [Concomitant]
     Active Substance: CALCITRIOL
     Indication: Prophylaxis
     Route: 048
     Dates: start: 20221123
  17. LEVOTHYROXINE SODIUM [Concomitant]
     Active Substance: LEVOTHYROXINE SODIUM
     Indication: Hypothyroidism
     Route: 048
     Dates: start: 2011
  18. LEVOTHYROXINE SODIUM [Concomitant]
     Active Substance: LEVOTHYROXINE SODIUM
     Indication: Hypothyroidism
     Route: 048
     Dates: start: 2011
  19. ALOCTRON [Concomitant]
     Indication: Premedication
     Route: 042
     Dates: start: 20250120
  20. ATROPINE SULFATE [Concomitant]
     Active Substance: ATROPINE SULFATE
     Indication: Premedication
     Route: 042
     Dates: start: 20250120
  21. PENIRAMIN [Concomitant]
     Indication: Premedication
     Route: 042
     Dates: start: 20250120
  22. HUMEDIX DEXAMETHASONE SODIUM PHOSPHATE [Concomitant]
     Indication: Premedication
     Route: 042
     Dates: start: 20250120
  23. MACPERAN [METOCLOPRAMIDE HYDROCHLORIDE] [Concomitant]
     Indication: Premedication
     Route: 042
     Dates: start: 20250120
  24. LEUCOVORIN [Concomitant]
     Active Substance: LEUCOVORIN\LEUCOVORIN CALCIUM
     Indication: Premedication
     Route: 042
     Dates: start: 20250120

REACTIONS (1)
  - Large intestinal obstruction [Recovered/Resolved]

NARRATIVE: CASE EVENT DATE: 20250427
